FAERS Safety Report 14318007 (Version 4)
Quarter: 2018Q1

REPORT INFORMATION
  Report Type: Spontaneous
  Country: JP (occurrence: JP)
  Receive Date: 20171222
  Receipt Date: 20180220
  Transmission Date: 20180509
  Serious: Yes (Hospitalization, Other)
  Sender: FDA-Public Use
  Company Number: JP-PFIZER INC-2017534690

PATIENT
  Age: 83 Year
  Sex: Female

DRUGS (2)
  1. AZULFIDINE EN-TABS [Suspect]
     Active Substance: SULFASALAZINE
     Dosage: 500 MG, 1X/DAY
     Route: 048
     Dates: end: 20180104
  2. AZULFIDINE EN-TABS [Suspect]
     Active Substance: SULFASALAZINE
     Indication: RHEUMATOID ARTHRITIS
     Dosage: 250 MG, 2X/DAY (IN THE MORNING AND THE EVENING)
     Route: 048

REACTIONS (3)
  - Dysphagia [Unknown]
  - Wrong technique in product usage process [Unknown]
  - Head injury [Unknown]
